FAERS Safety Report 26148129 (Version 2)
Quarter: 2025Q4

REPORT INFORMATION
  Report Type: Spontaneous
  Country: US (occurrence: US)
  Receive Date: 20251212
  Receipt Date: 20251212
  Transmission Date: 20260118
  Serious: Yes (Other)
  Sender: TORRENT PHARMA INC.
  Company Number: US-TORRENT-00014641

PATIENT
  Sex: Female

DRUGS (3)
  1. CITALOPRAM [Suspect]
     Active Substance: CITALOPRAM
     Indication: Depression
     Dosage: (THURSDAY EVENING), ONE TABLET PER DAY
     Route: 065
     Dates: start: 20251127
  2. TOPAMAX [Concomitant]
     Active Substance: TOPIRAMATE
     Indication: Migraine
     Route: 065
  3. ZYRTEC [Concomitant]
     Active Substance: CETIRIZINE HYDROCHLORIDE
     Indication: Hypersensitivity
     Dosage: UNKNOWN
     Route: 065

REACTIONS (5)
  - Headache [Recovered/Resolved]
  - Hypertension [Recovered/Resolved]
  - Anaphylactic reaction [Recovered/Resolved]
  - Allergic reaction to excipient [Recovered/Resolved]
  - Pollakiuria [Recovered/Resolved]
